FAERS Safety Report 9731168 (Version 1)
Quarter: 2013Q4

REPORT INFORMATION
  Report Type: Report from Study
  Country: US (occurrence: US)
  Receive Date: 20131205
  Receipt Date: 20131205
  Transmission Date: 20140711
  Serious: Yes (Other)
  Sender: FDA-Public Use
  Company Number: US-ROCHE-1313519

PATIENT
  Sex: Female

DRUGS (2)
  1. LUCENTIS [Suspect]
     Indication: MACULAR DEGENERATION
     Dosage: RIGHT EYE
     Route: 065
     Dates: start: 20130923
  2. DIOVAN [Concomitant]
     Indication: HYPERTENSION

REACTIONS (3)
  - Blindness [Unknown]
  - Visual impairment [Unknown]
  - Macular degeneration [Unknown]
